FAERS Safety Report 5810834-4 (Version None)
Quarter: 2008Q3

REPORT INFORMATION
  Report Type: 
  Country: None (occurrence: None)
  Receive Date: 20080710
  Receipt Date: 20080630
  Transmission Date: 20090109
  Serious: Yes (Other)
  Sender: FDA-Public Use
  Company Number: 2008AP001650

PATIENT
  Sex: Female

DRUGS (3)
  1. CIPROFLOXACIN [Suspect]
     Dosage: 1000 MG
  2. ENTOCORT EC [Suspect]
     Dosage: 9 MG
  3. METRONIDAZOLE HCL [Concomitant]

REACTIONS (6)
  - DRUG INTERACTION [None]
  - FACE OEDEMA [None]
  - FEELING ABNORMAL [None]
  - OEDEMA PERIPHERAL [None]
  - PHARYNGEAL OEDEMA [None]
  - TONGUE OEDEMA [None]
